FAERS Safety Report 13075888 (Version 1)
Quarter: 2016Q4

REPORT INFORMATION
  Report Type: Not Available
  Country: MY (occurrence: MY)
  Receive Date: 20161230
  Receipt Date: 20161230
  Transmission Date: 20170207
  Serious: Yes (Other)
  Sender: FDA-Public Use
  Company Number: MY-ANIPHARMA-2016-MY-000002

PATIENT
  Age: 62 Year
  Sex: Female

DRUGS (1)
  1. IBUPROFEN (NON-SPECIFIC) [Suspect]
     Active Substance: IBUPROFEN
     Dosage: 5 TABLETS (200 MG EACH) OVER 5 DAYS
     Route: 048

REACTIONS (1)
  - Henoch-Schonlein purpura nephritis [Unknown]
